FAERS Safety Report 9602477 (Version 4)
Quarter: 2015Q4

REPORT INFORMATION
  Report Type: Spontaneous
  Country: US (occurrence: US)
  Receive Date: 20131007
  Receipt Date: 20151109
  Transmission Date: 20160305
  Serious: Yes (Death, Hospitalization, Disabling, Other)
  Sender: FDA-Public Use
  Company Number: US-009507513-1310USA002842

PATIENT
  Sex: Male
  Weight: 73.52 kg

DRUGS (15)
  1. JANUVIA [Suspect]
     Active Substance: SITAGLIPTIN PHOSPHATE
     Indication: TYPE 2 DIABETES MELLITUS
     Dosage: 100 MG, QD
     Route: 048
     Dates: start: 20101214, end: 20130123
  2. LYRICA [Concomitant]
     Active Substance: PREGABALIN
     Dosage: 150-200 MG, TID
     Route: 048
  3. DOXEPIN HYDROCHLORIDE. [Concomitant]
     Active Substance: DOXEPIN HYDROCHLORIDE
     Indication: ANXIETY
     Dosage: 50-100 MG, HS
     Route: 048
     Dates: end: 201309
  4. ZESTRIL [Concomitant]
     Active Substance: LISINOPRIL
  5. HYDROCODONE/APAP [Concomitant]
     Active Substance: ACETAMINOPHEN\HYDROCODONE BITARTRATE
     Dosage: 10/500 MG, TID PRN
  6. LIPITOR [Concomitant]
     Active Substance: ATORVASTATIN CALCIUM
     Indication: HYPERLIPIDAEMIA
     Dosage: 40 MG, HS
     Route: 048
     Dates: start: 20120807
  7. HYDROCHLOROTHIAZIDE. [Concomitant]
     Active Substance: HYDROCHLOROTHIAZIDE
     Route: 048
  8. LISINOPRIL. [Concomitant]
     Active Substance: LISINOPRIL
     Indication: HYPERTENSION
     Dosage: 2.5-20 MG, DAILY
     Route: 048
  9. CRESTOR [Concomitant]
     Active Substance: ROSUVASTATIN CALCIUM
     Indication: HYPERLIPIDAEMIA
     Dosage: 20 MG, DAILY
     Route: 048
     Dates: end: 20120809
  10. METFORMIN [Concomitant]
     Active Substance: METFORMIN HYDROCHLORIDE
     Indication: TYPE 2 DIABETES MELLITUS
     Dosage: 1000 MG, BID
     Route: 048
     Dates: end: 201309
  11. PAXIL [Concomitant]
     Active Substance: PAROXETINE HYDROCHLORIDE
     Indication: NERVOUSNESS
     Dosage: 20 MG, DAILY
     Route: 048
     Dates: end: 201309
  12. DICYCLOMINE HYDROCHLORIDE. [Concomitant]
     Active Substance: DICYCLOMINE HYDROCHLORIDE
     Indication: IRRITABLE BOWEL SYNDROME
     Dosage: 20-80 MG, DAILY PRN
     Route: 048
     Dates: end: 201309
  13. SENOKOT (SENNOSIDES) [Concomitant]
     Dosage: 8.6-17.2 MG, QAM
     Route: 048
     Dates: start: 20120809
  14. VICODIN [Concomitant]
     Active Substance: ACETAMINOPHEN\HYDROCODONE BITARTRATE
     Dosage: TID PRN
     Dates: start: 20120809
  15. ASPIRIN. [Concomitant]
     Active Substance: ASPIRIN
     Dosage: 81 MG, DAILY
     Route: 048
     Dates: start: 20120809

REACTIONS (24)
  - Depression [Unknown]
  - Non-cardiac chest pain [Not Recovered/Not Resolved]
  - Hepatic cirrhosis [Unknown]
  - Diverticulum [Unknown]
  - Splenic vein occlusion [Unknown]
  - Malignant peritoneal neoplasm [Unknown]
  - Hepatic steatosis [Unknown]
  - Gallbladder disorder [Unknown]
  - Thrombocytopenia [Unknown]
  - Back pain [Not Recovered/Not Resolved]
  - Splenomegaly [Unknown]
  - Pulmonary mass [Unknown]
  - Adrenal disorder [Unknown]
  - Pancreatitis acute [Recovered/Resolved]
  - Blood cholesterol increased [Unknown]
  - Ascites [Unknown]
  - Nephrolithiasis [Unknown]
  - Cholecystectomy [Unknown]
  - Cholelithiasis [Unknown]
  - Portal vein occlusion [Unknown]
  - Pancreatic carcinoma metastatic [Fatal]
  - Diverticulitis [Unknown]
  - Hypertension [Unknown]
  - Irritable bowel syndrome [Unknown]

NARRATIVE: CASE EVENT DATE: 20120803
